FAERS Safety Report 5109977-2 (Version None)
Quarter: 2006Q3

REPORT INFORMATION
  Report Type: 
  Country: None (occurrence: None)
  Receive Date: 20060919
  Receipt Date: 20060919
  Transmission Date: 20061208
  Serious: Yes (Hospitalization)
  Sender: FDA-Public Use
  Company Number: None

PATIENT
  Age: 70 Year
  Sex: Male
  Weight: 72.7 kg

DRUGS (5)
  1. GLYBURIDE [Suspect]
     Indication: DIABETES MELLITUS NON-INSULIN-DEPENDENT
     Dosage: 5 MG AM, 2.5 MG PM
     Dates: start: 20051201
  2. FLOMAX [Concomitant]
  3. PHENAZOPYRIDINE HCL TAB [Concomitant]
  4. ADVIL [Concomitant]
  5. LISINOPRIL [Concomitant]

REACTIONS (4)
  - BLADDER NEOPLASM SURGERY [None]
  - HYPOGLYCAEMIA [None]
  - OBSTRUCTION [None]
  - RENAL FAILURE [None]
